FAERS Safety Report 8335583-2 (Version None)
Quarter: 2012Q2

REPORT INFORMATION
  Report Type: 
  Country: None (occurrence: None)
  Receive Date: 20120504
  Receipt Date: 20120424
  Transmission Date: 20120825
  Serious: Yes (Hospitalization)
  Sender: FDA-Public Use
  Company Number: US-BRISTOL-MYERS SQUIBB COMPANY-16544868

PATIENT
  Age: 16 Year
  Sex: Male

DRUGS (2)
  1. ABILIFY [Suspect]
     Dosage: FOR ABOUT A YEAR ON AND OFF
  2. CELEXA [Suspect]
     Dosage: DOSAGE WAS INCREASED FROM 10 TO 20 TO 40

REACTIONS (5)
  - INSOMNIA [None]
  - HOSTILITY [None]
  - SUICIDAL IDEATION [None]
  - IRRITABILITY [None]
  - CONFUSIONAL STATE [None]
